FAERS Safety Report 5026877-7 (Version None)
Quarter: 2006Q2

REPORT INFORMATION
  Report Type: 
  Country: None (occurrence: None)
  Receive Date: 20060608
  Receipt Date: 20060525
  Transmission Date: 20061013
  Serious: No
  Sender: FDA-Public Use
  Company Number: A-CH2006-12389

PATIENT
  Age: 55 Year
  Sex: Female
  Weight: 52 kg

DRUGS (4)
  1. TRACLEER [Suspect]
     Indication: PULMONARY HYPERTENSION
     Dosage: 125 MG, BID, ORAL; SEE IMAGE
     Route: 048
     Dates: start: 20040804, end: 20040906
  2. TRACLEER [Suspect]
     Indication: PULMONARY HYPERTENSION
     Dosage: 125 MG, BID, ORAL; SEE IMAGE
     Route: 048
     Dates: start: 20040907, end: 20041105
  3. METHOTREXATE [Concomitant]
  4. METHYLPREDNISOLONE [Concomitant]

REACTIONS (2)
  - ARTHRITIS [None]
  - DRUG INTERACTION [None]
